FAERS Safety Report 6377042-2 (Version None)
Quarter: 2009Q3

REPORT INFORMATION
  Report Type: 
  Country: None (occurrence: None)
  Receive Date: 20090925
  Receipt Date: 20090922
  Transmission Date: 20100115
  Serious: Yes (Hospitalization)
  Sender: FDA-Public Use
  Company Number: US-GILEAD-2009-0024431

PATIENT
  Sex: Male
  Weight: 86.26 kg

DRUGS (6)
  1. LETAIRIS [Suspect]
     Indication: PULMONARY ARTERIAL HYPERTENSION
     Route: 048
     Dates: start: 20090703, end: 20090904
  2. WARFARIN [Concomitant]
  3. LASIX [Concomitant]
  4. LOPRESSOR [Concomitant]
  5. PRILOSEC [Concomitant]
  6. GLUCOSAMINE [Concomitant]

REACTIONS (3)
  - FALL [None]
  - FATIGUE [None]
  - SWELLING [None]
